FAERS Safety Report 26092343 (Version 2)
Quarter: 2025Q4

REPORT INFORMATION
  Report Type: Spontaneous
  Country: EU (occurrence: EU)
  Receive Date: 20251126
  Receipt Date: 20251202
  Transmission Date: 20260117
  Serious: Yes (Hospitalization)
  Sender: NOVARTIS
  Company Number: EU-002147023-NVSC2025FR181014

PATIENT
  Age: 85 Year
  Sex: Male

DRUGS (2)
  1. TRAMETINIB [Suspect]
     Active Substance: TRAMETINIB
     Indication: Metastatic malignant melanoma
     Dosage: UNK
     Route: 065
     Dates: start: 20250121, end: 20250203
  2. NAPORAFENIB [Suspect]
     Active Substance: NAPORAFENIB
     Indication: Metastatic malignant melanoma
     Dosage: UNK
     Route: 065
     Dates: start: 20250121, end: 20250203

REACTIONS (4)
  - Neuromuscular pain [Unknown]
  - Troponin increased [Recovered/Resolved]
  - Musculoskeletal stiffness [Unknown]
  - Product use issue [Unknown]
